FAERS Safety Report 4632613-6 (Version None)
Quarter: 2005Q2

REPORT INFORMATION
  Report Type: 
  Country: None (occurrence: None)
  Receive Date: 20050408
  Receipt Date: 20050405
  Transmission Date: 20051028
  Serious: No
  Sender: FDA-Public Use
  Company Number: 004440

PATIENT
  Age: 22 Year
  Sex: Female
  Weight: 56.7 kg

DRUGS (1)
  1. JUNEL 1.5/30 [Suspect]
     Indication: ORAL CONTRACEPTION
     Dates: start: 20040101, end: 20041201

REACTIONS (1)
  - LUPUS-LIKE SYNDROME [None]
